FAERS Safety Report 9617100 (Version 1)
Quarter: 2013Q4

REPORT INFORMATION
  Report Type: Spontaneous
  Country: US (occurrence: None)
  Receive Date: 20131011
  Receipt Date: 20131011
  Transmission Date: 20140711
  Serious: Yes (Other)
  Sender: FDA-Public Use
  Company Number: None

PATIENT
  Age: 22 Year
  Sex: Female
  Weight: 51.71 kg

DRUGS (3)
  1. NORTRIPTYLINE [Suspect]
     Indication: DEPRESSION
     Route: 048
     Dates: start: 20130910, end: 20130925
  2. NORTRIPTYLINE [Suspect]
     Indication: HEADACHE
     Route: 048
     Dates: start: 20130910, end: 20130925
  3. NORTRIPTYLINE [Suspect]
     Indication: PROPHYLAXIS
     Route: 048
     Dates: start: 20130910, end: 20130925

REACTIONS (1)
  - Alopecia [None]
